FAERS Safety Report 4923451-5 (Version None)
Quarter: 2006Q1

REPORT INFORMATION
  Report Type: 
  Country: None (occurrence: None)
  Receive Date: 20060227
  Receipt Date: 20060103
  Transmission Date: 20060701
  Serious: Yes (Disabling, Other)
  Sender: FDA-Public Use
  Company Number: SE-RB-2537-2006

PATIENT
  Age: 1 Day
  Sex: Female

DRUGS (1)
  1. BUPRENORPHINE HCL [Suspect]
     Dosage: EXPOSURE DURING PREGNANCY
     Route: 060
     Dates: start: 20021001

REACTIONS (3)
  - DEVELOPMENTAL DELAY [None]
  - DRUG EXPOSURE DURING PREGNANCY [None]
  - DRUG WITHDRAWAL SYNDROME [None]
